FAERS Safety Report 15907871 (Version 6)
Quarter: 2022Q2

REPORT INFORMATION
  Report Type: Spontaneous
  Country: JP (occurrence: None)
  Receive Date: 20190204
  Receipt Date: 20220601
  Transmission Date: 20220720
  Serious: Yes (Death, Life-Threatening, Hospitalization, Disabling, Other)
  Sender: FDA-Public Use
  Company Number: 2019SE20141

PATIENT
  Age: 76 Year
  Sex: Female
  Weight: 41 kg

DRUGS (1)
  1. TAGRISSO [Suspect]
     Active Substance: OSIMERTINIB
     Indication: Non-small cell lung cancer
     Route: 048
     Dates: start: 20181203, end: 20190122

REACTIONS (7)
  - Pulmonary embolism [Fatal]
  - Cerebral infarction [Fatal]
  - Interstitial lung disease [Fatal]
  - Fall [Not Recovered/Not Resolved]
  - Femoral neck fracture [Unknown]
  - Thrombophlebitis migrans [Not Recovered/Not Resolved]
  - Diarrhoea [Recovered/Resolved]

NARRATIVE: CASE EVENT DATE: 20181221
